FAERS Safety Report 16199887 (Version 2)
Quarter: 2020Q1

REPORT INFORMATION
  Report Type: Spontaneous
  Country: AT (occurrence: AT)
  Receive Date: 20190415
  Receipt Date: 20200324
  Transmission Date: 20200409
  Serious: Yes (Hospitalization, Other)
  Sender: FDA-Public Use
  Company Number: PHHY2019AT081888

PATIENT
  Age: 66 Year
  Sex: Male
  Weight: 93 kg

DRUGS (10)
  1. ACETYLSALICYLIC ACID [Suspect]
     Active Substance: ASPIRIN
     Indication: PRODUCT USED FOR UNKNOWN INDICATION
     Dosage: UNK
     Route: 065
     Dates: start: 2016, end: 201607
  2. HEPARIN [Suspect]
     Active Substance: HEPARIN SODIUM
     Indication: PRODUCT USED FOR UNKNOWN INDICATION
     Dosage: UNK
     Route: 065
  3. ALNA [Suspect]
     Active Substance: TAMSULOSIN HYDROCHLORIDE
     Indication: PRODUCT USED FOR UNKNOWN INDICATION
     Dosage: UNK
     Route: 065
     Dates: start: 2016, end: 201607
  4. ELIQUIS [Suspect]
     Active Substance: APIXABAN
     Indication: PRODUCT USED FOR UNKNOWN INDICATION
     Dosage: 5 MG, BID
     Route: 065
     Dates: start: 201602, end: 201607
  5. VOLTAREN [Concomitant]
     Active Substance: DICLOFENAC SODIUM
     Indication: INTERVERTEBRAL DISC OPERATION
     Dosage: UNK
     Route: 065
  6. ACEMIN [CHLORPROMAZINE HYDROCHLORIDE] [Suspect]
     Active Substance: CHLORPROMAZINE HYDROCHLORIDE
     Indication: PRODUCT USED FOR UNKNOWN INDICATION
     Dosage: UNK
     Route: 065
  7. SIMVASTATIN. [Suspect]
     Active Substance: SIMVASTATIN
     Indication: PRODUCT USED FOR UNKNOWN INDICATION
     Dosage: 20 MG, QD
     Route: 065
     Dates: start: 2016
  8. ZOLPIDEM [Suspect]
     Active Substance: ZOLPIDEM TARTRATE
     Indication: PRODUCT USED FOR UNKNOWN INDICATION
     Dosage: 20 MG
     Route: 065
     Dates: start: 2016
  9. NICOTINELL [Suspect]
     Active Substance: NICOTINE
     Indication: PRODUCT USED FOR UNKNOWN INDICATION
     Dosage: UNK
     Route: 065
  10. XEFO [Concomitant]
     Active Substance: LORNOXICAM
     Indication: INTERVERTEBRAL DISC OPERATION
     Dosage: UNK
     Route: 065

REACTIONS (5)
  - Haemorrhage [Unknown]
  - Cerebral ischaemia [Unknown]
  - Headache [Recovered/Resolved]
  - Cerebrovascular accident [Unknown]
  - Dizziness [Unknown]

NARRATIVE: CASE EVENT DATE: 20160223
